FAERS Safety Report 16246079 (Version 1)
Quarter: 2019Q2

REPORT INFORMATION
  Report Type: Spontaneous
  Country: US (occurrence: US)
  Receive Date: 20190426
  Receipt Date: 20190426
  Transmission Date: 20190711
  Serious: Yes (Hospitalization)
  Sender: FDA-Public Use
  Company Number: US-PFIZER INC-2019177864

PATIENT
  Age: 22 Year
  Sex: Female

DRUGS (1)
  1. GENOTROPIN MQ [Suspect]
     Active Substance: SOMATROPIN
     Indication: PRADER-WILLI SYNDROME
     Dosage: 1.2 MG, DAILY

REACTIONS (8)
  - Abnormal behaviour [Unknown]
  - Constipation [Unknown]
  - Mental disorder [Unknown]
  - Dermatillomania [Unknown]
  - Aggression [Unknown]
  - Weight increased [Unknown]
  - Body mass index increased [Unknown]
  - Attention-seeking behaviour [Unknown]
